FAERS Safety Report 8276332-6 (Version None)
Quarter: 2012Q2

REPORT INFORMATION
  Report Type: 
  Country: None (occurrence: None)
  Receive Date: 20120412
  Receipt Date: 20120410
  Transmission Date: 20120825
  Serious: Yes (Hospitalization, Other)
  Sender: FDA-Public Use
  Company Number: PHHY2012ES030458

PATIENT
  Age: 86 Year
  Sex: Female

DRUGS (6)
  1. RANITIDINE [Concomitant]
  2. VALSARTAN/HYDROCHLOORTHIAZIDE [Concomitant]
  3. SIMVASTATIN [Concomitant]
  4. VOLTAREN [Suspect]
     Indication: PAIN
     Dosage: 150 MG, QD
     Route: 048
     Dates: end: 20100227
  5. ASPIRIN [Interacting]
     Dosage: 150 MG, UNK
     Route: 048
     Dates: start: 20100203, end: 20100227
  6. PLAVIX [Interacting]
     Dosage: 75 MG, UNK
     Dates: start: 20100203, end: 20100227

REACTIONS (3)
  - DRUG INTERACTION [None]
  - GASTRIC ULCER [None]
  - MELAENA [None]
